FAERS Safety Report 9225765 (Version 1)
Quarter: 2013Q1

REPORT INFORMATION
  Report Type: Spontaneous
  Country: US (occurrence: None)
  Receive Date: 20120914
  Receipt Date: 20120914
  Transmission Date: 20140127
  Serious: Yes (Other)
  Sender: FDA-Public Use
  Company Number: JPI-P-017375

PATIENT
  Age: 27 Year
  Sex: Female
  Weight: 58.97 kg

DRUGS (4)
  1. XYREM [Suspect]
     Indication: NARCOLEPSY
     Route: 048
     Dates: start: 20110126, end: 2011
  2. XYREM [Suspect]
     Indication: SOMNOLENCE
     Route: 048
     Dates: start: 20110126, end: 2011
  3. ALLEGRY MEDICINES [Concomitant]
  4. DEXTROAMPHETAMINE [Concomitant]

REACTIONS (4)
  - Antinuclear antibody positive [None]
  - Rheumatoid factor positive [None]
  - Burning sensation [None]
  - Pain in extremity [None]
